FAERS Safety Report 20301052 (Version 1)
Quarter: 2022Q1

REPORT INFORMATION
  Report Type: Spontaneous
  Country: US (occurrence: None)
  Receive Date: 20220105
  Receipt Date: 20220105
  Transmission Date: 20220423
  Serious: Yes (Life-Threatening, Hospitalization)
  Sender: FDA-Public Use
  Company Number: None

PATIENT
  Age: 61 Year
  Sex: Female
  Weight: 82.35 kg

DRUGS (6)
  1. EUTHYROX [Suspect]
     Active Substance: LEVOTHYROXINE SODIUM
     Indication: Hypothyroidism
     Dosage: OTHER QUANTITY : 1 TABLET(S);?
     Route: 048
     Dates: start: 20210501, end: 20211201
  2. XIFAXAN [Concomitant]
     Active Substance: RIFAXIMIN
  3. ACTIGAL [Concomitant]
  4. NADALOL [Concomitant]
  5. HYDROCHLOROTHIAZIDE [Concomitant]
     Active Substance: HYDROCHLOROTHIAZIDE
  6. VITAMINS [Concomitant]
     Active Substance: VITAMINS

REACTIONS (7)
  - Dizziness [None]
  - Insomnia [None]
  - Headache [None]
  - Asthenia [None]
  - Weight increased [None]
  - Product substitution issue [None]
  - Near death experience [None]

NARRATIVE: CASE EVENT DATE: 20211201
